FAERS Safety Report 4287034-5 (Version None)
Quarter: 2004Q1

REPORT INFORMATION
  Report Type: 
  Country: None (occurrence: None)
  Receive Date: 20040204
  Receipt Date: 20040130
  Transmission Date: 20041129
  Serious: Yes (Disabling)
  Sender: FDA-Public Use
  Company Number: STA-AE-03-MTX-128

PATIENT

DRUGS (6)
  1. METHOTREXATE [Suspect]
     Dosage: 2.5 MG 3X PER 1 WK
  2. VIOXX [Concomitant]
  3. PERSANTIN (DIPYRIDAMOLE) [Concomitant]
  4. ZOCOR [Concomitant]
  5. ASCAL CARDIO (CARBASALATE CALCIUM) [Concomitant]
  6. FOLIC ACID [Concomitant]

REACTIONS (4)
  - BLINDNESS TRANSIENT [None]
  - CEREBROVASCULAR SPASM [None]
  - LEUKOENCEPHALOPATHY [None]
  - TUNNEL VISION [None]
